FAERS Safety Report 24666115 (Version 2)
Quarter: 2024Q4

REPORT INFORMATION
  Report Type: Spontaneous
  Country: PT (occurrence: PT)
  Receive Date: 20241126
  Receipt Date: 20241219
  Transmission Date: 20250114
  Serious: Yes (Life-Threatening, Hospitalization, Other)
  Sender: SANOFI AVENTIS
  Company Number: None

PATIENT
  Age: 58 Year
  Sex: Male

DRUGS (2)
  1. ENOXAPARIN SODIUM [Suspect]
     Active Substance: ENOXAPARIN SODIUM
     Indication: Deep vein thrombosis
     Dosage: UNK
  2. ENOXAPARIN SODIUM [Suspect]
     Active Substance: ENOXAPARIN SODIUM
     Indication: Coagulopathy

REACTIONS (21)
  - Shock haemorrhagic [Recovering/Resolving]
  - Abdominal wall haematoma [Recovered/Resolved]
  - Retroperitoneal haematoma [Recovered/Resolved]
  - Arterial haemorrhage [Recovered/Resolved]
  - Abdominal pain lower [Recovered/Resolved]
  - Confusional state [Recovered/Resolved]
  - Asthenia [Recovered/Resolved]
  - Dysarthria [Recovered/Resolved]
  - Intra-abdominal haematoma [Recovered/Resolved]
  - Condition aggravated [Recovered/Resolved]
  - Jaundice [Recovered/Resolved]
  - Abdominal distension [Recovered/Resolved]
  - Ecchymosis [Recovered/Resolved]
  - Oedema peripheral [Recovered/Resolved]
  - Thrombocytopenia [Recovering/Resolving]
  - Respiratory distress [Recovering/Resolving]
  - Hypotension [Recovering/Resolving]
  - Metabolic acidosis [Recovering/Resolving]
  - Hyperlactacidaemia [Recovering/Resolving]
  - Anaemia [Recovering/Resolving]
  - Coagulopathy [Recovering/Resolving]
